FAERS Safety Report 5373585-9 (Version None)
Quarter: 2007Q2

REPORT INFORMATION
  Report Type: 
  Country: None (occurrence: None)
  Receive Date: 20070525
  Receipt Date: 20060126
  Transmission Date: 20071010
  Serious: No
  Sender: FDA-Public Use
  Company Number: 250401

PATIENT
  Age: 83 Year
  Sex: Female
  Weight: 81.6 kg

DRUGS (3)
  1. NOVOSEVEN [Suspect]
     Indication: COAGULATION TIME ABNORMAL
     Dosage: INTRAVENOUS
     Route: 042
     Dates: start: 20051212, end: 20051212
  2. COUMADIN [Concomitant]
  3. DOPAMINE HCL [Concomitant]

REACTIONS (1)
  - PULMONARY EMBOLISM [None]
